FAERS Safety Report 9919991 (Version 7)
Quarter: 2023Q1

REPORT INFORMATION
  Report Type: Spontaneous
  Country: GB (occurrence: GB)
  Receive Date: 20140224
  Receipt Date: 20230117
  Transmission Date: 20230417
  Serious: Yes (Hospitalization, Other)
  Sender: FDA-Public Use
  Company Number: GB-ELI_LILLY_AND_COMPANY-GB201402004715

PATIENT
  Age: 60 Year
  Sex: Female
  Weight: 55.4 kg

DRUGS (23)
  1. ALIMTA [Suspect]
     Active Substance: PEMETREXED DISODIUM
     Indication: Non-small cell lung cancer
     Dosage: 500 MG/M2, EVERY 3 WEEKS
     Route: 042
     Dates: start: 20131203, end: 20131203
  2. ALIMTA [Suspect]
     Active Substance: PEMETREXED DISODIUM
     Indication: Small cell lung cancer
     Dosage: 500 MG/M2, EVERY 3 WEEKS
     Route: 042
     Dates: start: 20131224, end: 20131224
  3. ALIMTA [Suspect]
     Active Substance: PEMETREXED DISODIUM
     Indication: Neoadjuvant therapy
     Dosage: 500 MG/M2, EVERY 3 WEEKS
     Route: 041
     Dates: start: 20140114, end: 20140114
  4. ALIMTA [Suspect]
     Active Substance: PEMETREXED DISODIUM
     Indication: Lung adenocarcinoma
  5. CISPLATIN [Suspect]
     Active Substance: CISPLATIN
     Indication: Non-small cell lung cancer
     Dosage: 75 MG/M2, CYCLICAL 3-WEEKY
     Route: 042
     Dates: start: 20131203, end: 20131203
  6. CISPLATIN [Suspect]
     Active Substance: CISPLATIN
     Indication: Small cell lung cancer
     Dosage: 75 MG/M2, CYCLICAL 3-WEEKY
     Route: 042
     Dates: start: 20131224, end: 20131224
  7. CISPLATIN [Suspect]
     Active Substance: CISPLATIN
     Indication: Neoadjuvant therapy
     Dosage: 75 MG/M2, CYCLICAL 3-WEEKY
     Route: 042
     Dates: start: 20140114, end: 20140114
  8. VITAMIN B12 [Suspect]
     Active Substance: CYANOCOBALAMIN
     Indication: Non-small cell lung cancer
     Dosage: 1000 UG, OTHER (PRE CYCLE 1 AND 3)
     Route: 030
     Dates: start: 20131203
  9. VITAMIN B12 [Suspect]
     Active Substance: CYANOCOBALAMIN
     Indication: Small cell lung cancer
     Dosage: 1000 UG, DAILY
     Route: 030
     Dates: start: 20140114, end: 20140114
  10. VITAMIN B12 [Suspect]
     Active Substance: CYANOCOBALAMIN
     Dosage: UNK UNK, UNKNOWN (RESTARTED)
     Route: 065
  11. HYDROXOCOBALAMIN HYDROCHLORIDE [Suspect]
     Active Substance: HYDROXOCOBALAMIN HYDROCHLORIDE
     Indication: Non-small cell lung cancer
     Dosage: UNK UNK, UNKNOWN
     Route: 065
     Dates: start: 20131203, end: 20131203
  12. HYDROXOCOBALAMIN HYDROCHLORIDE [Suspect]
     Active Substance: HYDROXOCOBALAMIN HYDROCHLORIDE
     Dosage: UNK UNK, UNKNOWN
     Route: 065
     Dates: start: 20131224
  13. HYDROXOCOBALAMIN HYDROCHLORIDE [Suspect]
     Active Substance: HYDROXOCOBALAMIN HYDROCHLORIDE
     Dosage: 1000 UG, UNKNOWN
     Route: 030
     Dates: start: 20140114, end: 20140114
  14. APREPITANT [Concomitant]
     Active Substance: APREPITANT
     Indication: Lung adenocarcinoma
     Dosage: UNK UNK, UNKNOWN
     Route: 065
     Dates: start: 20131203
  15. APREPITANT [Concomitant]
     Active Substance: APREPITANT
     Indication: Non-small cell lung cancer
     Dosage: 125 MG, UNKNOWN
     Route: 048
     Dates: start: 20131203
  16. CYCLIZINE [Concomitant]
     Active Substance: CYCLIZINE
     Indication: Lung adenocarcinoma
     Dosage: UNK UNK, UNKNOWN
     Route: 065
     Dates: start: 20131203
  17. CYCLIZINE [Concomitant]
     Active Substance: CYCLIZINE
     Indication: Non-small cell lung cancer
     Dosage: 50 MG, UNKNOWN
     Route: 048
  18. ONDANSETRON [Concomitant]
     Active Substance: ONDANSETRON
     Indication: Lung adenocarcinoma
     Dosage: 8 MG, UNKNOWN
     Route: 048
     Dates: start: 20131203
  19. ONDANSETRON [Concomitant]
     Active Substance: ONDANSETRON
     Indication: Non-small cell lung cancer
     Dosage: UNK UNK, UNKNOWN
     Route: 048
     Dates: start: 20131203
  20. DEXAMETHASONE [Concomitant]
     Active Substance: DEXAMETHASONE
     Indication: Lung adenocarcinoma
     Dosage: 4 MG, BID
     Route: 048
     Dates: start: 20131203
  21. DEXAMETHASONE [Concomitant]
     Active Substance: DEXAMETHASONE
     Indication: Non-small cell lung cancer
     Dosage: 8 MG, DAILY
     Route: 065
  22. LEUCOVORIN [Concomitant]
     Active Substance: LEUCOVORIN
     Indication: Lung adenocarcinoma
     Dosage: 400 MG, DAILY
     Route: 048
     Dates: start: 20131203
  23. LEUCOVORIN [Concomitant]
     Active Substance: LEUCOVORIN
     Indication: Non-small cell lung cancer
     Dosage: UNK UNK, DAILY
     Route: 048
     Dates: start: 20131203

REACTIONS (7)
  - Capillary leak syndrome [Recovered/Resolved]
  - Swelling face [Recovered/Resolved]
  - Peripheral swelling [Recovered/Resolved]
  - Chest discomfort [Recovered/Resolved]
  - Rash [Recovered/Resolved]
  - Vomiting [Recovered/Resolved]
  - Nausea [Recovered/Resolved]

NARRATIVE: CASE EVENT DATE: 20131203
